FAERS Safety Report 7611357-2 (Version None)
Quarter: 2011Q3

REPORT INFORMATION
  Report Type: 
  Country: None (occurrence: None)
  Receive Date: 20110715
  Receipt Date: 20110615
  Transmission Date: 20111222
  Serious: No
  Sender: FDA-Public Use
  Company Number: US-BAYER-2011-052014

PATIENT
  Sex: Female

DRUGS (3)
  1. YAZ [Concomitant]
  2. ANALGESICS [Concomitant]
  3. ALEVE (CAPLET) [Suspect]
     Indication: HEADACHE

REACTIONS (1)
  - HEADACHE [None]
